FAERS Safety Report 7962846-2 (Version None)
Quarter: 2011Q4

REPORT INFORMATION
  Report Type: 
  Country: None (occurrence: None)
  Receive Date: 20111207
  Receipt Date: 20111126
  Transmission Date: 20120403
  Serious: Yes (Hospitalization)
  Sender: FDA-Public Use
  Company Number: PHHY2011DE103721

PATIENT
  Sex: Female
  Weight: 70 kg

DRUGS (8)
  1. EFFORTIL [Suspect]
     Dosage: 15 ML, UNK
     Route: 048
  2. VALSARTAN  AND HYDROCHLOROTHIAZIDE [Suspect]
     Dosage: 9 DF, UNK
     Route: 048
  3. SYMBICORT [Suspect]
     Dosage: UNK UKN, UNK
  4. ACETAMINOPHEN [Suspect]
     Dosage: 14 DF, UNK
     Route: 048
  5. ASPIRIN [Suspect]
     Dosage: 9 DF, UNK
     Route: 048
  6. ALLOPURINOL [Suspect]
     Dosage: UNK UKN, UNK
  7. OMEPRAZOLE [Suspect]
     Dosage: UNK UKN, UNK
  8. LEVOTHYROXINE SODIUM [Suspect]
     Dosage: 25 DF, UNK
     Route: 048

REACTIONS (4)
  - HYPOTHERMIA [None]
  - SUICIDE ATTEMPT [None]
  - SOMNOLENCE [None]
  - OVERDOSE [None]
